FAERS Safety Report 4410076-3 (Version None)
Quarter: 2004Q3

REPORT INFORMATION
  Report Type: 
  Country: None (occurrence: None)
  Receive Date: 20040728
  Receipt Date: 20040611
  Transmission Date: 20050211
  Serious: Yes (Hospitalization)
  Sender: FDA-Public Use
  Company Number: JP-ROCHE-371181

PATIENT
  Age: 57 Year
  Sex: Female
  Weight: 54 kg

DRUGS (10)
  1. PEGASYS [Suspect]
     Indication: HEPATITIS C
     Route: 058
     Dates: start: 20040528, end: 20040528
  2. PEGASYS [Suspect]
     Route: 058
     Dates: start: 20040604, end: 20040604
  3. PEON [Concomitant]
     Indication: PYREXIA
     Dosage: TAKEN IN EVENING OF 09 JUN 2004 AND MORNING OF 10 JUN 2004
     Route: 048
     Dates: start: 20040609, end: 20040610
  4. SOLETON [Concomitant]
     Indication: PYREXIA
     Dosage: TAKEN AT NIGHT ON 10 JUN 2004 AND IN MORNING ON 11 JUN 2004
     Route: 048
     Dates: start: 20040610, end: 20040611
  5. TENORMIN [Concomitant]
     Indication: HYPERTENSION
     Route: 048
     Dates: start: 20040528, end: 20040618
  6. GLYCYRON [Concomitant]
     Indication: HEPATITIS C
     Route: 048
     Dates: start: 20040528, end: 20040618
  7. KOLANTYL [Concomitant]
     Indication: GASTRIC DISORDER
     Route: 048
     Dates: start: 20040528, end: 20040618
  8. DEPAS [Concomitant]
     Indication: INSOMNIA
     Route: 048
     Dates: start: 20040528, end: 20040618
  9. FLUTICASONE PROPIONATE [Concomitant]
     Dosage: ROUTE REPORTED AS INHALER
     Route: 050
     Dates: start: 20040528, end: 20040618
  10. CLARITHROMYCIN [Concomitant]
     Indication: GASTROINTESTINAL INFECTION
     Route: 048
     Dates: start: 20040610, end: 20040611

REACTIONS (8)
  - ANOREXIA [None]
  - DEHYDRATION [None]
  - DIARRHOEA [None]
  - HEADACHE [None]
  - NAUSEA [None]
  - PYREXIA [None]
  - RENAL FAILURE ACUTE [None]
  - RHINORRHOEA [None]
